FAERS Safety Report 5795827-8 (Version None)
Quarter: 2008Q3

REPORT INFORMATION
  Report Type: 
  Country: None (occurrence: None)
  Receive Date: 20080701
  Receipt Date: 20080624
  Transmission Date: 20090109
  Serious: Yes (Death)
  Sender: FDA-Public Use
  Company Number: DE-BAYER-200815788GPV

PATIENT
  Age: 47 Year
  Sex: Female
  Weight: 127 kg

DRUGS (21)
  1. AVELOX [Suspect]
     Indication: DRUG USE FOR UNKNOWN INDICATION
     Route: 048
     Dates: start: 20080301, end: 20080301
  2. TRUXAL [Concomitant]
     Indication: RESTLESSNESS
     Dosage: TOTAL DAILY DOSE: 90 MG  UNIT DOSE: 90 MG
     Route: 065
  3. IMPROMEN [Concomitant]
     Indication: PSYCHOTIC DISORDER
     Dosage: TOTAL DAILY DOSE: 25 MG  UNIT DOSE: 5 MG
     Route: 065
  4. PAROXAT [Concomitant]
     Indication: DEPRESSION
     Dosage: UNIT DOSE: 40 MG
     Route: 065
  5. LORAZEPAM [Concomitant]
     Indication: ANXIETY
     Dosage: TOTAL DAILY DOSE: 0.5 MG  UNIT DOSE: 0.5 MG
     Route: 065
  6. ZOPICLON [Concomitant]
     Indication: INSOMNIA
     Route: 065
  7. ADICLAIR [Concomitant]
     Indication: DRUG USE FOR UNKNOWN INDICATION
     Route: 065
     Dates: start: 20080313
  8. VIANI-DISKUS [Concomitant]
     Indication: BRONCHITIS
     Route: 065
     Dates: start: 20080201, end: 20080301
  9. KORODIN [Concomitant]
     Indication: DRUG USE FOR UNKNOWN INDICATION
     Route: 065
  10. CIMICIFUGA STADA [Concomitant]
     Indication: DRUG USE FOR UNKNOWN INDICATION
     Dosage: TOTAL DAILY DOSE: 6.5 MG  UNIT DOSE: 6.5 MG
     Route: 065
     Dates: start: 20080317
  11. PROSPAN [Concomitant]
     Indication: DRUG USE FOR UNKNOWN INDICATION
     Route: 065
     Dates: start: 20080212
  12. DOLO-DOBENDAN [Concomitant]
     Indication: DRUG USE FOR UNKNOWN INDICATION
     Route: 065
     Dates: start: 20080220
  13. BUSCOPAN [Concomitant]
     Indication: DRUG USE FOR UNKNOWN INDICATION
     Route: 065
  14. DISMENOL [Concomitant]
     Indication: DRUG USE FOR UNKNOWN INDICATION
     Route: 065
  15. MENOFLAVON BALANCE [Concomitant]
     Indication: DRUG USE FOR UNKNOWN INDICATION
     Route: 065
     Dates: start: 20070823
  16. MAGNESIUM [Concomitant]
     Indication: DRUG USE FOR UNKNOWN INDICATION
     Route: 065
  17. ACETAMINOPHEN [Concomitant]
     Indication: DRUG USE FOR UNKNOWN INDICATION
     Route: 065
  18. LAXOBERAL [Concomitant]
     Indication: DRUG USE FOR UNKNOWN INDICATION
     Route: 065
  19. RIBWORTH COUGH SYRUP [Concomitant]
     Indication: DRUG USE FOR UNKNOWN INDICATION
     Route: 065
  20. SULAGIL [Concomitant]
     Indication: DRUG USE FOR UNKNOWN INDICATION
     Route: 065
  21. OPTIVE [Concomitant]
     Indication: DRUG USE FOR UNKNOWN INDICATION
     Route: 065
     Dates: start: 20071215

REACTIONS (1)
  - SUDDEN CARDIAC DEATH [None]
